FAERS Safety Report 21179475 (Version 1)
Quarter: 2022Q3

REPORT INFORMATION
  Report Type: Spontaneous
  Country: ES (occurrence: ES)
  Receive Date: 20220805
  Receipt Date: 20220805
  Transmission Date: 20221026
  Serious: Yes (Life-Threatening, Hospitalization)
  Sender: FDA-Public Use
  Company Number: None

PATIENT
  Age: 17 Year
  Sex: Male

DRUGS (2)
  1. PREGABALIN [Interacting]
     Active Substance: PREGABALIN
     Indication: Substance use
     Dosage: PREGABALINA (3897A),UNIT DOSE :  300MG, FREQUENCY TIME : 1 TOTAL, DURATION :1 DAY
     Route: 065
     Dates: start: 20220311, end: 20220311
  2. CLONAZEPAM [Interacting]
     Active Substance: CLONAZEPAM
     Indication: Substance use
     Dosage: CLONAZEPAM (635A), UNIT DOSE : 18MG, FREQUENCY TIME : 1 TOTAL, DURATION :1 DAY
     Route: 065
     Dates: start: 20220311, end: 20220311

REACTIONS (4)
  - Depressed level of consciousness [Recovered/Resolved]
  - Substance use [Recovered/Resolved]
  - Intentional overdose [Recovered/Resolved]
  - Drug interaction [Unknown]

NARRATIVE: CASE EVENT DATE: 20220312
